FAERS Safety Report 12086548 (Version 1)
Quarter: 2016Q1

REPORT INFORMATION
  Report Type: Spontaneous
  Country: US (occurrence: US)
  Receive Date: 20160217
  Receipt Date: 20160217
  Transmission Date: 20160526
  Serious: No
  Sender: FDA-Public Use
  Company Number: US-ALLERGAN-1504469US

PATIENT
  Sex: Female

DRUGS (3)
  1. GENTEAL GELDROPS [Concomitant]
     Dosage: UNK UNK, QPM
  2. RESTASIS [Suspect]
     Active Substance: CYCLOSPORINE
     Indication: DRY EYE
  3. LUMIGAN [Suspect]
     Active Substance: BIMATOPROST
     Indication: PRODUCT USED FOR UNKNOWN INDICATION
     Dosage: UNK UNK, QID

REACTIONS (2)
  - Inappropriate schedule of drug administration [Unknown]
  - Dry eye [Unknown]
